FAERS Safety Report 8290224-8 (Version None)
Quarter: 2012Q2

REPORT INFORMATION
  Report Type: 
  Country: None (occurrence: None)
  Receive Date: 20120417
  Receipt Date: 20110321
  Transmission Date: 20120825
  Serious: Yes (Death, Hospitalization, Other)
  Sender: FDA-Public Use
  Company Number: US-BAYER-200917666NA

PATIENT
  Age: 75 Year
  Sex: Male
  Weight: 93 kg

DRUGS (16)
  1. TRASYLOL [Suspect]
     Indication: CORONARY ARTERY BYPASS
  2. AMIODARONE HCL [Concomitant]
     Dosage: 400MG BID
     Route: 048
  3. NITROGLYCERIN [Concomitant]
     Route: 042
  4. TRASYLOL [Suspect]
     Indication: AORTIC VALVE REPLACEMENT
     Dosage: 200 MG BOLUS FOLLOWED BY 70MG/ HOUR INFUSION; 2 MILLION UNITS PUMP
     Route: 042
     Dates: start: 20060207
  5. PROSCAR [Concomitant]
     Dosage: 5MG DAILY
     Route: 048
  6. FLONASE [Concomitant]
     Dosage: 2 SPRAYS DAILY
     Route: 045
  7. LASIX [Concomitant]
     Route: 042
  8. INSULIN [Concomitant]
     Route: 042
  9. RED BLOOD CELLS, CONCENTRATED [Concomitant]
     Dosage: 3 UNITS
     Route: 042
     Dates: start: 20060208
  10. TRICOR [Concomitant]
     Dosage: 160MG DAILY
     Route: 048
  11. METFORMIN HCL [Concomitant]
     Dosage: 500MG DAILY
     Route: 048
  12. DIGOXIN [Concomitant]
     Dosage: .25MG DAILY
     Route: 048
  13. AGGRENOX [Concomitant]
     Dosage: 200/25 MG DAILY
     Route: 048
  14. LIPITOR [Concomitant]
     Dosage: 20MG DAILY
     Route: 048
  15. HYDROCHLOROTHIAZIDE [Concomitant]
     Dosage: 12.5MG DAILY
     Route: 048
  16. HEPARIN [Concomitant]
     Dosage: 24,000 UNITS
     Route: 042

REACTIONS (13)
  - PAIN [None]
  - RENAL FAILURE [None]
  - STRESS [None]
  - ANXIETY [None]
  - UNEVALUABLE EVENT [None]
  - OLIGURIA [None]
  - FEAR [None]
  - MULTI-ORGAN FAILURE [None]
  - EMOTIONAL DISTRESS [None]
  - RENAL INJURY [None]
  - DEATH [None]
  - RENAL IMPAIRMENT [None]
  - RENAL FAILURE ACUTE [None]
